FAERS Safety Report 4749564-9 (Version None)
Quarter: 2005Q3

REPORT INFORMATION
  Report Type: 
  Country: None (occurrence: None)
  Receive Date: 20050822
  Receipt Date: 20050817
  Transmission Date: 20060218
  Serious: Yes (Hospitalization, Other)
  Sender: FDA-Public Use
  Company Number: FRPFM-L-20040003

PATIENT
  Age: 60 Year
  Sex: Female

DRUGS (2)
  1. NAVELBINE [Suspect]
     Route: 042
  2. CARBOPLATIN [Suspect]
     Indication: NON-SMALL CELL LUNG CANCER

REACTIONS (4)
  - COMPUTERISED TOMOGRAM ABNORMAL [None]
  - DRUG TOXICITY [None]
  - DYSPNOEA EXACERBATED [None]
  - PULMONARY MASS [None]
